FAERS Safety Report 5418256-5 (Version None)
Quarter: 2007Q3

REPORT INFORMATION
  Report Type: 
  Country: None (occurrence: None)
  Receive Date: 20070817
  Receipt Date: 20070810
  Transmission Date: 20080115
  Serious: Yes (Life-Threatening, Hospitalization, Other)
  Sender: FDA-Public Use
  Company Number: B0463944A

PATIENT
  Age: 64 Year
  Sex: Female

DRUGS (8)
  1. DIGOXIN [Suspect]
     Indication: ATRIAL FIBRILLATION
     Route: 065
  2. SECURON [Suspect]
     Indication: DRUG USE FOR UNKNOWN INDICATION
     Route: 065
  3. SOTALOL HYDROCHLORIDE [Suspect]
     Indication: ATRIAL FIBRILLATION
     Route: 065
  4. VERAPAMIL [Suspect]
     Indication: ATRIAL FIBRILLATION
     Dosage: 80MG THREE TIMES PER DAY
     Route: 065
  5. CO-AMILOFRUSE [Concomitant]
     Route: 065
  6. FRUMIL [Concomitant]
     Route: 065
  7. PERINDOPRIL ERBUMINE [Concomitant]
     Route: 065
  8. WARFARIN [Concomitant]
     Route: 065

REACTIONS (16)
  - ABDOMINAL TENDERNESS [None]
  - ANURIA [None]
  - ATRIAL FIBRILLATION [None]
  - BRADYCARDIA [None]
  - CARDIAC FAILURE [None]
  - CARDIOACTIVE DRUG LEVEL DECREASED [None]
  - CARDIOMEGALY [None]
  - DEPRESSED LEVEL OF CONSCIOUSNESS [None]
  - DRUG INTERACTION [None]
  - HYPOTENSION [None]
  - LIVEDO RETICULARIS [None]
  - LIVER FUNCTION TEST ABNORMAL [None]
  - METABOLIC ACIDOSIS [None]
  - PULSE ABSENT [None]
  - RENAL FAILURE [None]
  - RENAL IMPAIRMENT [None]
